FAERS Safety Report 8172042-4 (Version None)
Quarter: 2012Q1

REPORT INFORMATION
  Report Type: 
  Country: None (occurrence: None)
  Receive Date: 20120228
  Receipt Date: 20120222
  Transmission Date: 20120608
  Serious: Yes (Other)
  Sender: FDA-Public Use
  Company Number: JP-B.I. PHARMACEUTICALS,INC./RIDGEFIELD-2012-BP-03499NB

PATIENT
  Age: 72 Year
  Sex: Male

DRUGS (3)
  1. PRAMIPEXOLE DIHYDROCHLORIDE [Suspect]
     Indication: RESTLESS LEGS SYNDROME
     Route: 048
     Dates: start: 20110601, end: 20111201
  2. ANTIHYPERTENSIVES [Concomitant]
     Dosage: UNK
     Route: 048
  3. PRAMIPEXOLE DIHYDROCHLORIDE [Suspect]
     Route: 048

REACTIONS (5)
  - HALLUCINATION, VISUAL [None]
  - INSOMNIA [None]
  - DEMENTIA WITH LEWY BODIES [None]
  - MUSCULOSKELETAL STIFFNESS [None]
  - TENDON RUPTURE [None]
